FAERS Safety Report 7750562-1 (Version None)
Quarter: 2011Q3

REPORT INFORMATION
  Report Type: 
  Country: None (occurrence: None)
  Receive Date: 20110914
  Receipt Date: 20110912
  Transmission Date: 20111222
  Serious: Yes (Hospitalization, Other)
  Sender: FDA-Public Use
  Company Number: US-MERCK-0911USA01630

PATIENT
  Age: 47 Year
  Sex: Female

DRUGS (2)
  1. FOSAMAX [Suspect]
     Route: 048
     Dates: start: 20000101, end: 20080801
  2. FOSAMAX PLUS D [Suspect]
     Route: 048
     Dates: end: 20080101

REACTIONS (4)
  - FEMUR FRACTURE [None]
  - LOWER LIMB FRACTURE [None]
  - FOOT FRACTURE [None]
  - TIBIA FRACTURE [None]
